FAERS Safety Report 19771359 (Version 3)
Quarter: 2022Q4

REPORT INFORMATION
  Report Type: Spontaneous
  Country: US (occurrence: US)
  Receive Date: 20210831
  Receipt Date: 20221122
  Transmission Date: 20230113
  Serious: Yes (Other)
  Sender: FDA-Public Use
  Company Number: US-PFIZER INC-202101080380

PATIENT
  Age: 80 Year
  Sex: Male

DRUGS (1)
  1. VYNDAMAX [Suspect]
     Active Substance: TAFAMIDIS
     Dosage: 61 MG

REACTIONS (9)
  - Hypothyroidism [Unknown]
  - Atrial fibrillation [Unknown]
  - Cardiac failure congestive [Unknown]
  - Sinus node dysfunction [Unknown]
  - Cardiac failure [Unknown]
  - Chronic kidney disease [Unknown]
  - Hypertensive heart disease [Unknown]
  - Essential hypertension [Unknown]
  - Hyperlipidaemia [Unknown]
